FAERS Safety Report 9698897 (Version 1)
Quarter: 2013Q4

REPORT INFORMATION
  Report Type: Spontaneous
  Country: FR (occurrence: FR)
  Receive Date: 20131120
  Receipt Date: 20131120
  Transmission Date: 20140711
  Serious: Yes (Hospitalization)
  Sender: FDA-Public Use
  Company Number: FR-ABBVIE-13P-056-1171134-00

PATIENT
  Age: 48 Year
  Sex: Male

DRUGS (8)
  1. DEPAKINE CHRONO [Suspect]
     Indication: EPILEPSY
     Route: 048
  2. TRILEPTAL [Suspect]
     Route: 048
     Dates: start: 20130731
  3. ALEPSAL [Suspect]
     Indication: EPILEPSY
     Route: 048
  4. URBANYL [Concomitant]
     Indication: PRODUCT USED FOR UNKNOWN INDICATION
  5. VIMPAT [Concomitant]
     Indication: PRODUCT USED FOR UNKNOWN INDICATION
  6. MODECATE [Concomitant]
     Indication: PRODUCT USED FOR UNKNOWN INDICATION
  7. INEGY [Concomitant]
     Indication: PRODUCT USED FOR UNKNOWN INDICATION
  8. INEGY [Concomitant]
     Indication: PRODUCT USED FOR UNKNOWN INDICATION

REACTIONS (2)
  - Fall [Recovered/Resolved]
  - Somnolence [Recovered/Resolved]
